FAERS Safety Report 18501244 (Version 2)
Quarter: 2020Q4

REPORT INFORMATION
  Report Type: Spontaneous
  Country: US (occurrence: US)
  Receive Date: 20201113
  Receipt Date: 20201119
  Transmission Date: 20210114
  Serious: Yes (Hospitalization)
  Sender: FDA-Public Use
  Company Number: US-PFIZER INC-2020446630

PATIENT
  Age: 23 Year
  Sex: Male

DRUGS (4)
  1. ZIPRASIDONE HCL [Interacting]
     Active Substance: ZIPRASIDONE HYDROCHLORIDE
     Dosage: 40 MG, 2X/DAY
  2. GREEN TEA EXTRACT (DIETARY SUPPLEMENT) [Interacting]
     Active Substance: DIETARY SUPPLEMENT
     Indication: WEIGHT LOSS DIET
     Dosage: 6 DF (6 PILLS)
     Route: 048
  3. ZIPRASIDONE HCL [Suspect]
     Active Substance: ZIPRASIDONE HYDROCHLORIDE
     Indication: SCHIZOPHRENIA
     Dosage: 80 MG, 2X/DAY
  4. ZIPRASIDONE HCL [Interacting]
     Active Substance: ZIPRASIDONE HYDROCHLORIDE
     Dosage: 20 DF, OVERDOSED ON 20 PILLS

REACTIONS (3)
  - Intentional overdose [Unknown]
  - Psychotic disorder [Recovered/Resolved]
  - Drug interaction [Recovered/Resolved]
